FAERS Safety Report 15918968 (Version 4)
Quarter: 2019Q2

REPORT INFORMATION
  Report Type: Spontaneous
  Country: GR (occurrence: GR)
  Receive Date: 20190205
  Receipt Date: 20190408
  Transmission Date: 20190711
  Serious: Yes (Hospitalization, Other)
  Sender: FDA-Public Use
  Company Number: GR-MYLANLABS-2019M1009640

PATIENT
  Age: 77 Year
  Sex: Male

DRUGS (3)
  1. LEVETIRACETAM. [Suspect]
     Active Substance: LEVETIRACETAM
     Indication: EPILEPSY
     Dosage: UNK
     Route: 065
  2. VALPROIC ACID. [Suspect]
     Active Substance: VALPROIC ACID
     Indication: EPILEPSY
     Dosage: UNK
     Route: 065
  3. OXCARBAZEPINE. [Suspect]
     Active Substance: OXCARBAZEPINE
     Indication: EPILEPSY
     Dosage: UNK
     Route: 065

REACTIONS (10)
  - Hallucinations, mixed [Recovered/Resolved]
  - Memory impairment [Recovering/Resolving]
  - Confusional state [Recovering/Resolving]
  - Hallucination, visual [Recovered/Resolved]
  - Partial seizures [Recovered/Resolved]
  - Bradyarrhythmia [Recovering/Resolving]
  - Hallucination, auditory [Recovered/Resolved]
  - Muscle contractions involuntary [Recovering/Resolving]
  - Muscle contracture [Recovered/Resolved]
  - Limbic encephalitis [Unknown]
